FAERS Safety Report 12237332 (Version 1)
Quarter: 2016Q2

REPORT INFORMATION
  Report Type: Spontaneous
  Country: US (occurrence: None)
  Receive Date: 20160404
  Receipt Date: 20160404
  Transmission Date: 20160815
  Serious: Yes (Other)
  Sender: FDA-Public Use
  Company Number: None

PATIENT
  Age: 37 Year
  Sex: Female
  Weight: 61.24 kg

DRUGS (1)
  1. COPPER IUD [Suspect]
     Active Substance: COPPER\INTRAUTERINE DEVICE

REACTIONS (10)
  - Cervix disorder [None]
  - Anorgasmia [None]
  - Muscle spasms [None]
  - Dyspareunia [None]
  - Premenstrual syndrome [None]
  - Pain [None]
  - Muscle contracture [None]
  - Menorrhagia [None]
  - Mood altered [None]
  - Sexual dysfunction [None]

NARRATIVE: CASE EVENT DATE: 20120417
